FAERS Safety Report 18433153 (Version 1)
Quarter: 2020Q4

REPORT INFORMATION
  Report Type: Spontaneous
  Country: US (occurrence: US)
  Receive Date: 20201028
  Receipt Date: 20201028
  Transmission Date: 20210114
  Serious: No
  Sender: FDA-Public Use
  Company Number: US-ACCORD-167304

PATIENT
  Age: 23 Year
  Sex: Female
  Weight: 45.36 kg

DRUGS (1)
  1. SPIRONOLACTONE. [Suspect]
     Active Substance: SPIRONOLACTONE
     Indication: PRODUCT USED FOR UNKNOWN INDICATION
     Dosage: STRENGTH 50 MG

REACTIONS (6)
  - Product taste abnormal [Unknown]
  - Product coating issue [Unknown]
  - Product dose omission issue [Unknown]
  - Malaise [Unknown]
  - Product odour abnormal [Unknown]
  - Weight decreased [Unknown]
